FAERS Safety Report 18439196 (Version 1)
Quarter: 2020Q4

REPORT INFORMATION
  Report Type: Spontaneous
  Country: CH (occurrence: CH)
  Receive Date: 20201028
  Receipt Date: 20201028
  Transmission Date: 20210114
  Serious: Yes (Other)
  Sender: FDA-Public Use
  Company Number: CH-009507513-2010CHE009014

PATIENT
  Age: 57 Year
  Sex: Female

DRUGS (4)
  1. PEMBROLIZUMAB. [Suspect]
     Active Substance: PEMBROLIZUMAB
     Indication: METASTASES TO CENTRAL NERVOUS SYSTEM
  2. PEMBROLIZUMAB. [Suspect]
     Active Substance: PEMBROLIZUMAB
     Indication: NAEVOID MELANOMA
     Dosage: SINGLE INFUSION
  3. IPILIMUMAB [Suspect]
     Active Substance: IPILIMUMAB
     Indication: METASTASES TO CENTRAL NERVOUS SYSTEM
  4. IPILIMUMAB [Suspect]
     Active Substance: IPILIMUMAB
     Indication: NAEVOID MELANOMA
     Dosage: 4 CYCLES

REACTIONS (6)
  - Immune-mediated pneumonitis [Unknown]
  - Adrenalitis [Unknown]
  - Immune-mediated myocarditis [Unknown]
  - Hypophysitis [Unknown]
  - Immune-mediated hepatitis [Unknown]
  - Immune-mediated thyroiditis [Unknown]
